FAERS Safety Report 9726011 (Version 2)
Quarter: 2014Q2

REPORT INFORMATION
  Report Type: Spontaneous
  Country: US (occurrence: US)
  Receive Date: 20131203
  Receipt Date: 20140404
  Transmission Date: 20141212
  Serious: Yes (Hospitalization, Other)
  Sender: FDA-Public Use
  Company Number: US-BAYER-2013-143692

PATIENT
  Age: 23 Year
  Sex: Female
  Weight: 45.35 kg

DRUGS (2)
  1. MIRENA [Suspect]
     Indication: CONTRACEPTION
     Dosage: 20 MCG/24HR, CONT
     Route: 015
     Dates: start: 20081001, end: 20130319
  2. LORTAB [HYDROCODONE BITARTRATE,PARACETAMOL] [Concomitant]
     Indication: PAIN

REACTIONS (9)
  - Uterine perforation [None]
  - Vaginal haemorrhage [None]
  - Pain [None]
  - Abdominal pain lower [None]
  - Injury [None]
  - Emotional distress [None]
  - Dyspareunia [None]
  - Depression [None]
  - Device issue [None]
